FAERS Safety Report 18537909 (Version 1)
Quarter: 2020Q4

REPORT INFORMATION
  Report Type: Spontaneous
  Country: GB (occurrence: GB)
  Receive Date: 20201124
  Receipt Date: 20201124
  Transmission Date: 20210114
  Serious: Yes (Hospitalization)
  Sender: FDA-Public Use
  Company Number: GB-ACCORD-208769

PATIENT
  Age: 67 Year
  Sex: Male
  Weight: 73.5 kg

DRUGS (8)
  1. CLENIL MODULITE [Concomitant]
     Active Substance: BECLOMETHASONE DIPROPIONATE
  2. APIXABAN [Suspect]
     Active Substance: APIXABAN
     Indication: DEEP VEIN THROMBOSIS
     Route: 048
     Dates: start: 20200722
  3. PREGABALIN. [Concomitant]
     Active Substance: PREGABALIN
  4. SALBUTAMOL [Concomitant]
     Active Substance: ALBUTEROL
  5. CALCI-D [Concomitant]
     Active Substance: CALCIUM CARBONATE\CHOLECALCIFEROL
  6. IRON [Concomitant]
     Active Substance: IRON
  7. THIAMINE. [Concomitant]
     Active Substance: THIAMINE
  8. AMOXICILLIN/CLAVULANATE POTASSIUM [Concomitant]
     Active Substance: AMOXICILLIN\CLAVULANATE POTASSIUM

REACTIONS (4)
  - Faeces discoloured [Unknown]
  - Dizziness [Unknown]
  - Discoloured vomit [Unknown]
  - Duodenitis [Recovering/Resolving]

NARRATIVE: CASE EVENT DATE: 20201029
